FAERS Safety Report 10081862 (Version 1)
Quarter: 2014Q2

REPORT INFORMATION
  Report Type: Spontaneous
  Country: US (occurrence: US)
  Receive Date: 20140416
  Receipt Date: 20140416
  Transmission Date: 20141212
  Serious: No
  Sender: FDA-Public Use
  Company Number: US-009507513-1404USA000413

PATIENT
  Age: 11 Year
  Sex: Female

DRUGS (3)
  1. CLARITIN CHEWABLE TABLETS [Suspect]
     Indication: ALLERGY TO ANIMAL
     Dosage: UNK, UNKNOWN
     Route: 048
  2. CLARITIN CHEWABLE TABLETS [Suspect]
     Indication: ALLERGY TO ANIMAL
  3. BENADRYL [Concomitant]
     Indication: ALLERGY TO ANIMAL
     Dosage: UNK, UNKNOWN

REACTIONS (2)
  - Drug ineffective for unapproved indication [Unknown]
  - Off label use [Unknown]
